FAERS Safety Report 6139830-7 (Version None)
Quarter: 2009Q1

REPORT INFORMATION
  Report Type: 
  Country: None (occurrence: None)
  Receive Date: 20090324
  Receipt Date: 20090319
  Transmission Date: 20090719
  Serious: Yes (Hospitalization, Other)
  Sender: FDA-Public Use
  Company Number: 57790

PATIENT
  Age: 24 Year
  Sex: Male

DRUGS (2)
  1. BLEOMYCIN SULFATE [Suspect]
     Indication: GERM CELL CANCER
  2. CISPLATIN [Suspect]
     Indication: GERM CELL CANCER

REACTIONS (6)
  - CHORIOCARCINOMA [None]
  - GASTROINTESTINAL HAEMORRHAGE [None]
  - GASTROINTESTINAL NECROSIS [None]
  - HYPOTENSION [None]
  - MELAENA [None]
  - METASTASES TO SMALL INTESTINE [None]
